FAERS Safety Report 4337448-X (Version None)
Quarter: 2004Q2

REPORT INFORMATION
  Report Type: 
  Country: None (occurrence: None)
  Receive Date: 20040408
  Receipt Date: 20040401
  Transmission Date: 20050107
  Serious: Yes (Other)
  Sender: FDA-Public Use
  Company Number: IT-JNJFOC-20040400677

PATIENT
  Age: 32 Year
  Sex: Female

DRUGS (1)
  1. REMICADE [Suspect]
     Indication: CROHN'S DISEASE
     Dosage: 350 MG, 1 IN 1 MONTH, INTRAVENOUS
     Route: 042
     Dates: start: 20030521, end: 20030521

REACTIONS (3)
  - LARYNGEAL OEDEMA [None]
  - SYNCOPE [None]
  - VASODILATATION [None]
